FAERS Safety Report 5621338-6 (Version None)
Quarter: 2008Q1

REPORT INFORMATION
  Report Type: 
  Country: None (occurrence: None)
  Receive Date: 20080211
  Receipt Date: 20080122
  Transmission Date: 20080703
  Serious: Yes (Hospitalization)
  Sender: FDA-Public Use
  Company Number: IR-BAYER-200812524GPV

PATIENT
  Age: 5 Year
  Sex: Female

DRUGS (1)
  1. CIPROFLOXACIN HCL [Suspect]
     Indication: DRUG USE FOR UNKNOWN INDICATION
     Route: 065

REACTIONS (6)
  - ANGIOEDEMA [None]
  - ARTHRALGIA [None]
  - ARTHRITIS [None]
  - PYREXIA [None]
  - RASH [None]
  - SERUM SICKNESS [None]
